FAERS Safety Report 7855145-0 (Version None)
Quarter: 2011Q4

REPORT INFORMATION
  Report Type: 
  Country: None (occurrence: None)
  Receive Date: 20111026
  Receipt Date: 20111011
  Transmission Date: 20120403
  Serious: Yes (Other)
  Sender: FDA-Public Use
  Company Number: US-WATSON-2011-17049

PATIENT
  Age: 29 Year
  Sex: Female

DRUGS (1)
  1. PREDNISONE [Suspect]
     Indication: SYSTEMIC LUPUS ERYTHEMATOSUS
     Dosage: 60 MG, DAILY

REACTIONS (3)
  - CHORIORETINOPATHY [None]
  - RETINAL PIGMENT EPITHELIOPATHY [None]
  - VISION BLURRED [None]
